FAERS Safety Report 18137757 (Version 2)
Quarter: 2021Q1

REPORT INFORMATION
  Report Type: Spontaneous
  Country: CA (occurrence: CA)
  Receive Date: 20200811
  Receipt Date: 20210105
  Transmission Date: 20210419
  Serious: Yes (Other)
  Sender: FDA-Public Use
  Company Number: CA-SAMSUNG BIOEPIS-SB-2020-25245

PATIENT
  Age: 78 Year
  Sex: Female

DRUGS (2)
  1. ETANERCEPT [Suspect]
     Active Substance: ETANERCEPT
     Indication: PSORIATIC ARTHROPATHY
     Route: 058
  2. ETANERCEPT [Suspect]
     Active Substance: ETANERCEPT
     Dosage: UNKNOWN
     Route: 065

REACTIONS (8)
  - Vaginal abscess [Unknown]
  - Musculoskeletal stiffness [Unknown]
  - Genital abscess [Unknown]
  - Epistaxis [Unknown]
  - Rectal haemorrhage [Unknown]
  - Vertigo [Unknown]
  - Pain [Unknown]
  - Drug ineffective [Unknown]
